FAERS Safety Report 14670344 (Version 4)
Quarter: 2019Q4

REPORT INFORMATION
  Report Type: Spontaneous
  Country: US (occurrence: US)
  Receive Date: 20180322
  Receipt Date: 20191218
  Transmission Date: 20200122
  Serious: No
  Sender: FDA-Public Use
  Company Number: US-ADAMAS PHARMA, LLC-2017ADA00011

PATIENT
  Age: 70 Year
  Sex: Female
  Weight: 61.68 kg

DRUGS (19)
  1. FOLIC ACID. [Concomitant]
     Active Substance: FOLIC ACID
  2. RASAGILINE. [Concomitant]
     Active Substance: RASAGILINE
     Dosage: UNK
  3. RYTARY [Concomitant]
     Active Substance: CARBIDOPA\LEVODOPA
  4. GOCOVRI [Suspect]
     Active Substance: AMANTADINE
     Indication: DYSKINESIA
     Dosage: 137 MG, 1X/DAY AT BEDTIME
     Route: 048
     Dates: start: 20171111, end: 20171117
  5. METHOTREXATE. [Concomitant]
     Active Substance: METHOTREXATE
  6. GOCOVRI [Suspect]
     Active Substance: AMANTADINE
     Indication: DYSKINESIA
     Dosage: 68.5 MG, 1X/DAY AT BEDTIME
     Route: 048
  7. RASAGILINE. [Concomitant]
     Active Substance: RASAGILINE
     Dosage: UNK
  8. SENNA [Concomitant]
     Active Substance: SENNA LEAF\SENNOSIDES\SENNOSIDES A AND B
  9. GOCOVRI [Suspect]
     Active Substance: AMANTADINE
     Dosage: 274 MG, 1X/DAY AT BEDTIME
     Route: 048
     Dates: start: 20171118
  10. REMICADE [Concomitant]
     Active Substance: INFLIXIMAB
  11. ASPIRIN. [Concomitant]
     Active Substance: ASPIRIN
  12. NEUPRO [Concomitant]
     Active Substance: ROTIGOTINE
  13. TASIGNA [Concomitant]
     Active Substance: NILOTINIB
  14. VITAMIN D [Concomitant]
     Active Substance: VITAMIN D NOS
  15. MAGNESIUM [Concomitant]
     Active Substance: MAGNESIUM
     Dosage: UNK, AS NEEDED
  16. GOCOVRI [Suspect]
     Active Substance: AMANTADINE
     Dosage: 137 MG, 1X/DAY AT BEDTIME
     Route: 048
  17. COLACE [Concomitant]
     Active Substance: DOCUSATE SODIUM
  18. SINEMET [Concomitant]
     Active Substance: CARBIDOPA\LEVODOPA
     Dosage: 0.5 TABLETS, AS NEEDED
  19. ATORVASTATIN [Concomitant]
     Active Substance: ATORVASTATIN

REACTIONS (14)
  - Sleep talking [Not Recovered/Not Resolved]
  - Amnesia [Not Recovered/Not Resolved]
  - Vision blurred [Not Recovered/Not Resolved]
  - Fall [Recovering/Resolving]
  - Dry mouth [Not Recovered/Not Resolved]
  - Balance disorder [Recovering/Resolving]
  - Cataract [Not Recovered/Not Resolved]
  - Constipation [Not Recovered/Not Resolved]
  - Clavicle fracture [Recovered/Resolved]
  - Aphasia [Not Recovered/Not Resolved]
  - Anxiety [Not Recovered/Not Resolved]
  - Diplopia [Not Recovered/Not Resolved]
  - Hallucination [Recovering/Resolving]
  - Hand fracture [Recovered/Resolved]

NARRATIVE: CASE EVENT DATE: 201711
